FAERS Safety Report 14145313 (Version 3)
Quarter: 2017Q4

REPORT INFORMATION
  Report Type: Report from Study
  Country: JP (occurrence: JP)
  Receive Date: 20171031
  Receipt Date: 20171207
  Transmission Date: 20180321
  Serious: Yes (Other)
  Sender: FDA-Public Use
  Company Number: JP-UCBSA-2017042729

PATIENT
  Age: 84 Year
  Sex: Male
  Weight: 37 kg

DRUGS (6)
  1. PHENOBAL [Concomitant]
     Active Substance: PHENOBARBITAL
     Indication: FOCAL DYSCOGNITIVE SEIZURES
     Route: 042
     Dates: start: 20161009, end: 20161009
  2. LEVETIRACETAM. [Suspect]
     Active Substance: LEVETIRACETAM
     Indication: FOCAL DYSCOGNITIVE SEIZURES
     Dosage: 500 MG, 2X/DAY (BID)
     Route: 041
     Dates: start: 20161009, end: 20161014
  3. SOLDEM 3A [Concomitant]
     Active Substance: CARBOHYDRATES\POTASSIUM CHLORIDE\SODIUM CHLORIDE\SODIUM LACTATE
     Indication: FLUID REPLACEMENT
     Dosage: UNK
     Dates: start: 20161009, end: 20161011
  4. HORIZON [Concomitant]
     Active Substance: DIAZEPAM
     Indication: FOCAL DYSCOGNITIVE SEIZURES
     Dosage: 5 MG, ONCE DAILY (QD)
     Route: 042
     Dates: start: 20161009, end: 20161009
  5. SODIUM CHLORIDE. [Concomitant]
     Active Substance: SODIUM CHLORIDE
     Indication: PRODUCT USED FOR UNKNOWN INDICATION
  6. BFLUID [Concomitant]
     Active Substance: AMINO ACIDS\DEXTROSE\ELECTROLYTES NOS\VITAMINS
     Indication: FLUID REPLACEMENT
     Dosage: UNK
     Dates: start: 20161012, end: 20161013

REACTIONS (3)
  - Anaemia [Not Recovered/Not Resolved]
  - Urinary tract infection [Recovered/Resolved]
  - Hyponatraemia [Recovered/Resolved]

NARRATIVE: CASE EVENT DATE: 20161011
